FAERS Safety Report 6412995-5 (Version None)
Quarter: 2009Q4

REPORT INFORMATION
  Report Type: 
  Country: None (occurrence: None)
  Receive Date: 20091023
  Receipt Date: 20091015
  Transmission Date: 20100525
  Serious: Yes (Hospitalization)
  Sender: FDA-Public Use
  Company Number: PHHO2006TR21792

PATIENT
  Sex: Female
  Weight: 56 kg

DRUGS (8)
  1. RAD 666 RAD+TAB+PTR [Suspect]
     Indication: RENAL TRANSPLANT
     Dosage: 0.75 MG, BID
     Route: 048
     Dates: start: 20061116
  2. RAD 666 RAD+TAB+PTR [Suspect]
     Dosage: 0.5/0.75 MG PER DAY
     Route: 048
  3. RAD 666 RAD+TAB+PTR [Suspect]
     Route: 048
  4. RAD 666 RAD+TAB+PTR [Suspect]
     Dosage: 0.75 MG/DAILY
     Route: 048
  5. NEORAL [Suspect]
     Indication: RENAL TRANSPLANT
     Dosage: 100 MG, BID
     Route: 048
     Dates: start: 20061116
  6. NEORAL [Suspect]
     Dosage: 75 MG, BID
     Route: 048
  7. NEORAL [Suspect]
     Dosage: 50 MG, BID
  8. METHYLPREDNISOLONE [Concomitant]
     Indication: RENAL TRANSPLANT

REACTIONS (11)
  - ABDOMINAL PAIN [None]
  - DIARRHOEA [None]
  - DRUG INEFFECTIVE [None]
  - GASTROENTERITIS [None]
  - NAUSEA [None]
  - NEUTROPHIL COUNT INCREASED [None]
  - PERITONITIS [None]
  - STAPHYLOCOCCAL INFECTION [None]
  - VOMITING [None]
  - WEIGHT DECREASED [None]
  - WHITE BLOOD CELL COUNT INCREASED [None]
